FAERS Safety Report 5837079-6 (Version None)
Quarter: 2008Q3

REPORT INFORMATION
  Report Type: 
  Country: None (occurrence: None)
  Receive Date: 20080807
  Receipt Date: 20071211
  Transmission Date: 20090109
  Serious: No
  Sender: FDA-Public Use
  Company Number: A0698258A

PATIENT
  Age: 47 Year
  Sex: Female

DRUGS (10)
  1. TAGAMET HB 200 [Suspect]
     Dates: start: 20071209, end: 20071209
  2. VISTARIL [Concomitant]
     Indication: NAUSEA
     Route: 048
  3. ATENOLOL [Concomitant]
     Indication: HYPERTENSION
     Route: 048
  4. AVAPRO [Concomitant]
     Route: 048
  5. PROZAC [Concomitant]
     Route: 048
  6. WELLBUTRIN [Concomitant]
     Route: 048
  7. XANAX [Concomitant]
     Route: 048
  8. AMBIEN [Concomitant]
  9. LASIX [Concomitant]
  10. POTASSIUM CHLORIDE [Concomitant]

REACTIONS (1)
  - FAECES DISCOLOURED [None]
